FAERS Safety Report 23426090 (Version 2)
Quarter: 2024Q3

REPORT INFORMATION
  Report Type: Report from Study
  Country: CN (occurrence: CN)
  Receive Date: 20240122
  Receipt Date: 20240823
  Transmission Date: 20241016
  Serious: Yes (Other)
  Sender: ROCHE
  Company Number: CN-ROCHE-2364051

PATIENT
  Age: 59 Year
  Sex: Male
  Weight: 53.0 kg

DRUGS (1)
  1. AVASTIN [Suspect]
     Active Substance: BEVACIZUMAB
     Indication: Rectal cancer
     Route: 041
     Dates: start: 20170831

REACTIONS (10)
  - Wound dehiscence [Recovering/Resolving]
  - Ill-defined disorder [Recovering/Resolving]
  - Inflammation of wound [Recovering/Resolving]
  - Tremor [Unknown]
  - Back pain [Unknown]
  - Renal pain [Unknown]
  - Proteinuria [Unknown]
  - Renal failure [Unknown]
  - Blood creatinine increased [Unknown]
  - Protein urine present [Unknown]
